FAERS Safety Report 25917551 (Version 1)
Quarter: 2025Q4

REPORT INFORMATION
  Report Type: Other
  Country: GB (occurrence: GB)
  Receive Date: 20251014
  Receipt Date: 20251014
  Transmission Date: 20260118
  Serious: Yes (Hospitalization, Disabling, Congenital Anomaly, Other)
  Sender: GLENMARK
  Company Number: GB-MHRA-TPP5382194C10740111YC1759235479061

PATIENT
  Age: 81 Year
  Sex: Female
  Weight: 72 kg

DRUGS (19)
  1. DAPAGLIFLOZIN [Suspect]
     Active Substance: DAPAGLIFLOZIN
     Indication: Product used for unknown indication
     Dosage: 10 MILLIGRAM, QD
     Route: 065
     Dates: start: 20250823
  2. APIXABAN [Concomitant]
     Active Substance: APIXABAN
     Indication: Ill-defined disorder
     Dosage: 2.5 MILLIGRAM (2.5 MG)
     Route: 065
     Dates: start: 20250403
  3. ATORVASTATIN [Concomitant]
     Active Substance: ATORVASTATIN
     Indication: Ill-defined disorder
     Dosage: 20 MILLIGRAM (20 MG)
     Route: 065
     Dates: start: 20250317
  4. Aymes shake [Concomitant]
     Indication: Ill-defined disorder
     Dosage: UNK (1 SACHET)
     Route: 065
     Dates: start: 20250928
  5. DOXAZOSIN [Concomitant]
     Active Substance: DOXAZOSIN MESYLATE
     Indication: Ill-defined disorder
     Dosage: 8 MILLIGRAM (8 MG)
     Route: 065
     Dates: start: 20250317
  6. FERROUS SULFATE [Concomitant]
     Active Substance: FERROUS SULFATE
     Indication: Ill-defined disorder
     Dosage: 200 MILLIGRAM (200 MG)
     Route: 065
     Dates: start: 20250928
  7. HUMULIN L [Concomitant]
     Active Substance: INSULIN HUMAN
     Indication: Ill-defined disorder
     Dosage: 18 UNK (18 UNIT)
     Route: 065
     Dates: start: 20250929
  8. LERCANIDIPINE HYDROCHLORIDE [Concomitant]
     Active Substance: LERCANIDIPINE HYDROCHLORIDE
     Indication: Ill-defined disorder
     Dosage: 20 MILLIGRAM (20 MG)
     Route: 065
     Dates: start: 20250317
  9. MORPHINE SULFATE [Concomitant]
     Active Substance: MORPHINE SULFATE
     Indication: Ill-defined disorder
     Dosage: UNK (5-10 MG)
     Route: 065
     Dates: start: 20250928
  10. OMEPRAZOLE [Concomitant]
     Active Substance: OMEPRAZOLE
     Indication: Ill-defined disorder
     Dosage: 20 MILLIGRAM (20 MG)
     Route: 065
     Dates: start: 20250317
  11. ACETAMINOPHEN [Concomitant]
     Active Substance: ACETAMINOPHEN
     Indication: Ill-defined disorder
     Dosage: UNK (1-2 TABLET)
     Route: 065
     Dates: start: 20250928
  12. SENNA [Concomitant]
     Active Substance: SENNOSIDES
     Indication: Ill-defined disorder
     Dosage: UNK DOSAGE FORM (1-2 TABLET)
     Route: 065
     Dates: start: 20250928
  13. ALLOPURINOL [Concomitant]
     Active Substance: ALLOPURINOL
     Indication: Ill-defined disorder
     Dosage: 100 MILLIGRAM (100 MG)
     Route: 065
     Dates: start: 20250317
  14. LOSARTAN [Concomitant]
     Active Substance: LOSARTAN
     Indication: Ill-defined disorder
     Dosage: 25 MILLIGRAM (25 MG)
     Route: 065
     Dates: start: 20250317
  15. BISOPROLOL [Concomitant]
     Active Substance: BISOPROLOL
     Indication: Ill-defined disorder
     Dosage: 10 MILLIGRAM (10 MG)
     Route: 065
     Dates: start: 20250317
  16. GLICLAZIDE [Concomitant]
     Active Substance: GLICLAZIDE
     Indication: Ill-defined disorder
     Dosage: 80 MILLIGRAM (80 MG)
     Route: 065
     Dates: start: 20250520
  17. LEVOTHYROXINE [Concomitant]
     Active Substance: LEVOTHYROXINE
     Indication: Ill-defined disorder
     Dosage: 50 MICROGRAM (50 MICROGRAM)
     Route: 065
     Dates: start: 20250317
  18. LINAGLIPTIN [Concomitant]
     Active Substance: LINAGLIPTIN
     Indication: Ill-defined disorder
     Dosage: 5 MILLIGRAM (5 MG)
     Route: 065
     Dates: start: 20250317
  19. POLYETHYLENE GLYCOLS [Concomitant]
     Active Substance: POLYETHYLENE GLYCOLS
     Indication: Ill-defined disorder
     Dosage: UNK
     Route: 065

REACTIONS (2)
  - Fall [Unknown]
  - Fournier^s gangrene [Recovered/Resolved with Sequelae]

NARRATIVE: CASE EVENT DATE: 20250823
